FAERS Safety Report 19742971 (Version 2)
Quarter: 2021Q3

REPORT INFORMATION
  Report Type: Spontaneous
  Country: CA (occurrence: CA)
  Receive Date: 20210824
  Receipt Date: 20210826
  Transmission Date: 20211014
  Serious: Yes (Other)
  Sender: FDA-Public Use
  Company Number: CA-009507513-2108CAN006156

PATIENT
  Sex: Female

DRUGS (37)
  1. BETAMETHASONE VALERATE. [Suspect]
     Active Substance: BETAMETHASONE VALERATE
     Dosage: UNK
     Route: 065
  2. ATORVASTATIN CALCIUM. [Suspect]
     Active Substance: ATORVASTATIN CALCIUM
     Dosage: UNK
     Route: 065
  3. BIAXIN [Suspect]
     Active Substance: CLARITHROMYCIN
     Dosage: UNK
     Route: 065
  4. BISACODYL. [Suspect]
     Active Substance: BISACODYL
     Dosage: UNK
     Route: 065
  5. CLOTRIMAZOLE. [Suspect]
     Active Substance: CLOTRIMAZOLE
     Dosage: UNK
     Route: 065
  6. DIPHENHYDRAMINE. [Suspect]
     Active Substance: DIPHENHYDRAMINE
     Dosage: UNK
     Route: 065
  7. MORPHINE SULFATE. [Suspect]
     Active Substance: MORPHINE SULFATE
     Dosage: UNK
     Route: 065
  8. HUMIRA [Suspect]
     Active Substance: ADALIMUMAB
     Dosage: DOSAGE FORM; SOLUTION SUBCUTANEOUS
     Route: 065
  9. MUPIROCIN. [Suspect]
     Active Substance: MUPIROCIN
     Dosage: UNK
     Route: 061
  10. INVANZ [Suspect]
     Active Substance: ERTAPENEM SODIUM
     Dosage: UNK
     Route: 065
  11. BETAMETHASONE DIPROPIONATE. [Suspect]
     Active Substance: BETAMETHASONE DIPROPIONATE
     Dosage: UNK
     Route: 065
  12. ALPRAZOLAM. [Suspect]
     Active Substance: ALPRAZOLAM
     Dosage: UNK
     Route: 065
  13. AMOXICILLIN TRIHYDRATE [Suspect]
     Active Substance: AMOXICILLIN
     Dosage: UNK
     Route: 065
  14. FLOVENT [Suspect]
     Active Substance: FLUTICASONE PROPIONATE
     Dosage: UNK
     Route: 065
  15. HYDROCHLOROTHIAZIDE. [Suspect]
     Active Substance: HYDROCHLOROTHIAZIDE
     Dosage: UNK
     Route: 065
  16. MESALAZINE [Suspect]
     Active Substance: MESALAMINE
     Indication: PRODUCT USED FOR UNKNOWN INDICATION
     Dosage: UNK
     Route: 065
  17. PENTASA [Suspect]
     Active Substance: MESALAMINE
     Dosage: UNK
     Route: 065
  18. METRONIDAZOLE. [Suspect]
     Active Substance: METRONIDAZOLE
     Indication: PRODUCT USED FOR UNKNOWN INDICATION
     Dosage: UNK
     Route: 065
  19. VALSARTAN. [Concomitant]
     Active Substance: VALSARTAN
     Dosage: UNK
     Route: 065
  20. AVAMYS [Suspect]
     Active Substance: FLUTICASONE FUROATE
     Dosage: UNK
     Route: 065
  21. CALCIUM CARBONATE;COLECALCIFEROL;ZINC [Suspect]
     Active Substance: CALCIUM CARBONATE\CHOLECALCIFEROL\ZINC
     Dosage: UNK
     Route: 065
  22. CLARITHROMYCIN. [Suspect]
     Active Substance: CLARITHROMYCIN
     Dosage: UNK
     Route: 065
  23. DESONIDE. [Suspect]
     Active Substance: DESONIDE
     Dosage: UNK
     Route: 065
  24. REFRESH TEARS [Suspect]
     Active Substance: CARBOXYMETHYLCELLULOSE SODIUM
     Dosage: UNK
     Route: 047
  25. AZITHROMYCIN ANHYDROUS. [Suspect]
     Active Substance: AZITHROMYCIN ANHYDROUS
     Dosage: UNK
     Route: 065
  26. ACETAMINOPHEN. [Suspect]
     Active Substance: ACETAMINOPHEN
     Dosage: UNK
     Route: 065
  27. BUDESONIDE. [Suspect]
     Active Substance: BUDESONIDE
     Dosage: UNK
     Route: 065
  28. ERGOCALCIFEROL. [Suspect]
     Active Substance: ERGOCALCIFEROL
     Dosage: UNK
     Route: 065
  29. NADOLOL. [Suspect]
     Active Substance: NADOLOL
     Dosage: UNK
     Route: 065
  30. PREDNISONE. [Suspect]
     Active Substance: PREDNISONE
     Dosage: UNK
     Route: 065
  31. SULFAMETHOXAZOL;TRIMETOPRIM [Suspect]
     Active Substance: SULFAMETHOXAZOLE\TRIMETHOPRIM
     Dosage: UNK
     Route: 065
  32. TRIAMCINOLONE ACETONIDE. [Suspect]
     Active Substance: TRIAMCINOLONE ACETONIDE
     Dosage: DOSAGE FORM; SUSPENSION INTRAARTICULAR, UNK
     Route: 065
  33. VITAMIN D3 [Suspect]
     Active Substance: CHOLECALCIFEROL
     Dosage: UNK
     Route: 065
  34. CETIRIZINE HYDROCHLORIDE. [Suspect]
     Active Substance: CETIRIZINE HYDROCHLORIDE
     Dosage: UNK
     Route: 065
  35. NICOTINE POLACRILEX [Suspect]
     Active Substance: NICOTINE
     Dosage: UNK
     Route: 065
  36. PREGABALIN. [Suspect]
     Active Substance: PREGABALIN
     Dosage: UNK
     Route: 065
  37. PULMICORT TURBUHALER [Suspect]
     Active Substance: BUDESONIDE
     Dosage: UNK

REACTIONS (2)
  - Drug ineffective [Unknown]
  - Macular degeneration [Unknown]
